FAERS Safety Report 18790389 (Version 4)
Quarter: 2021Q2

REPORT INFORMATION
  Report Type: Spontaneous
  Country: JP (occurrence: JP)
  Receive Date: 20210126
  Receipt Date: 20210415
  Transmission Date: 20210717
  Serious: Yes (Other)
  Sender: FDA-Public Use
  Company Number: JP-PFIZER INC-2021040722

PATIENT
  Age: 73 Year
  Sex: Male
  Weight: 91.9 kg

DRUGS (14)
  1. APREPITANT. [Interacting]
     Active Substance: APREPITANT
     Indication: PROPHYLAXIS OF NAUSEA AND VOMITING
     Dosage: 125 MG ON DAY 1
     Route: 048
  2. ASPIRINE [Concomitant]
     Active Substance: ASPIRIN
     Dosage: 100 MG
  3. DEXAMETHASONE. [Concomitant]
     Active Substance: DEXAMETHASONE
     Dosage: 9.9 MG ON DAY 1
     Route: 042
  4. CISPLATIN. [Concomitant]
     Active Substance: CISPLATIN
     Dosage: 75 MG/M2
  5. APREPITANT. [Interacting]
     Active Substance: APREPITANT
     Dosage: 80 MG ON DAY 2 AND 3
     Route: 048
  6. MAGNESIUM OXIDE. [Concomitant]
     Active Substance: MAGNESIUM OXIDE
     Dosage: 330 MG
  7. PALONOSETRON. [Concomitant]
     Active Substance: PALONOSETRON HYDROCHLORIDE
     Dosage: 0.75 MG ON DAY 1
     Route: 042
  8. GEMCITABINE. [Concomitant]
     Active Substance: GEMCITABINE
     Dosage: 1250 MG/M2
  9. RANITIDINE. [Concomitant]
     Active Substance: RANITIDINE
     Dosage: 150 MG
  10. SENNOSIDES. [Concomitant]
     Active Substance: SENNOSIDES
     Dosage: 12 MG, 1X/DAY
  11. AMLODIPINE BESILATE [Suspect]
     Active Substance: AMLODIPINE BESYLATE
     Indication: HYPERTENSION
     Dosage: 5 MG
     Route: 048
  12. ATORVASTATIN [Concomitant]
     Active Substance: ATORVASTATIN
     Dosage: 5 MG
  13. CANDESARTAN. [Concomitant]
     Active Substance: CANDESARTAN
     Dosage: 8 MG
  14. DEXAMETHASONE. [Concomitant]
     Active Substance: DEXAMETHASONE
     Dosage: 8 MG (ON DAYS 2 TO 4)
     Route: 048

REACTIONS (2)
  - Drug interaction [Unknown]
  - Atrioventricular block second degree [Recovered/Resolved]
